FAERS Safety Report 21503783 (Version 2)
Quarter: 2022Q4

REPORT INFORMATION
  Report Type: Spontaneous
  Country: SE (occurrence: SE)
  Receive Date: 20221025
  Receipt Date: 20221220
  Transmission Date: 20230113
  Serious: Yes (Other)
  Sender: FDA-Public Use
  Company Number: SE-NOVARTISPH-NVSC2022SE235903

PATIENT
  Sex: Male

DRUGS (1)
  1. LAMOTRIGINE [Suspect]
     Active Substance: LAMOTRIGINE
     Indication: Product used for unknown indication
     Dosage: UNK
     Route: 065

REACTIONS (15)
  - Status epilepticus [Unknown]
  - Dyskinesia [Unknown]
  - Palpitations [Unknown]
  - Coordination abnormal [Unknown]
  - Balance disorder [Unknown]
  - Constipation [Unknown]
  - Haematuria [Unknown]
  - Abdominal pain [Unknown]
  - Tinnitus [Unknown]
  - Amnesia [Unknown]
  - Emotional disorder [Unknown]
  - Tremor [Unknown]
  - Headache [Unknown]
  - Vision blurred [Unknown]
  - Arthralgia [Unknown]
